FAERS Safety Report 10788996 (Version 1)
Quarter: 2015Q1

REPORT INFORMATION
  Report Type: Spontaneous
  Country: US (occurrence: None)
  Receive Date: 20150211
  Receipt Date: 20150211
  Transmission Date: 20150721
  Serious: Yes (Disabling)
  Sender: FDA-Public Use
  Company Number: None

PATIENT
  Age: 53 Year
  Sex: Male
  Weight: 90.72 kg

DRUGS (1)
  1. LEVAQUIN [Suspect]
     Active Substance: LEVOFLOXACIN
     Indication: DRUG THERAPY
     Dosage: 1 PILL
     Route: 048
     Dates: start: 20140918, end: 20140922

REACTIONS (7)
  - Joint swelling [None]
  - Impaired work ability [None]
  - Arthralgia [None]
  - Tendon rupture [None]
  - Frustration [None]
  - Musculoskeletal pain [None]
  - Back pain [None]

NARRATIVE: CASE EVENT DATE: 20150201
